FAERS Safety Report 6848302-3 (Version None)
Quarter: 2010Q3

REPORT INFORMATION
  Report Type: 
  Country: None (occurrence: None)
  Receive Date: 20100716
  Receipt Date: 20100706
  Transmission Date: 20110219
  Serious: Yes (Other)
  Sender: FDA-Public Use
  Company Number: FR-ROCHE-714131

PATIENT
  Sex: Male
  Weight: 78 kg

DRUGS (5)
  1. PEGINTERFERON ALFA-2A [Suspect]
     Route: 058
     Dates: start: 20100115
  2. RIBAVIRIN [Suspect]
     Route: 048
     Dates: start: 20091211
  3. PRAVASTATIN SODIUM [Concomitant]
     Route: 048
     Dates: start: 20040101
  4. ASPEGIC 1000 [Concomitant]
     Route: 048
     Dates: start: 20040101
  5. PRITOR [Concomitant]
     Route: 048
     Dates: start: 20100311

REACTIONS (1)
  - GAMMA-GLUTAMYLTRANSFERASE [None]
